FAERS Safety Report 6780941-0 (Version None)
Quarter: 2010Q2

REPORT INFORMATION
  Report Type: 
  Country: None (occurrence: None)
  Receive Date: 20100615
  Receipt Date: 20100602
  Transmission Date: 20101027
  Serious: Yes (Other)
  Sender: FDA-Public Use
  Company Number: 430003L08ESP

PATIENT
  Age: 59 Year
  Sex: Female

DRUGS (1)
  1. MITOXANTRONE [Suspect]
     Indication: MULTIPLE SCLEROSIS
     Dosage: 10 MG/M2, 1 IN 3 M
     Dates: end: 20050501

REACTIONS (4)
  - ACUTE PROMYELOCYTIC LEUKAEMIA [None]
  - BLEEDING TIME PROLONGED [None]
  - HAEMATOMA [None]
  - PANCYTOPENIA [None]
